FAERS Safety Report 6868866-3 (Version None)
Quarter: 2010Q3

REPORT INFORMATION
  Report Type: 
  Country: None (occurrence: None)
  Receive Date: 20100722
  Receipt Date: 20080915
  Transmission Date: 20110219
  Serious: No
  Sender: FDA-Public Use
  Company Number: US-PFIZER INC-2008046438

PATIENT
  Sex: Female
  Weight: 61.4 kg

DRUGS (4)
  1. CHANTIX [Suspect]
     Indication: SMOKING CESSATION THERAPY
     Dates: start: 20080519
  2. GLUCOPHAGE [Concomitant]
  3. CARDIOVASCULAR SYSTEM DRUGS [Concomitant]
  4. MOTRIN [Concomitant]

REACTIONS (3)
  - MALAISE [None]
  - VOMITING [None]
  - WEIGHT DECREASED [None]
